FAERS Safety Report 24128445 (Version 1)
Quarter: 2024Q3

REPORT INFORMATION
  Report Type: Report from Study
  Country: US (occurrence: None)
  Receive Date: 20240723
  Receipt Date: 20240723
  Transmission Date: 20241017
  Serious: Yes (Hospitalization)
  Sender: ASTRAZENECA
  Company Number: 2022A283974

PATIENT
  Sex: Female

DRUGS (6)
  1. TAGRISSO [Suspect]
     Active Substance: OSIMERTINIB
     Indication: Lung neoplasm malignant
     Route: 048
  2. ALPRAZOLAM [Concomitant]
     Active Substance: ALPRAZOLAM
  3. FUROSEMIDE [Concomitant]
     Active Substance: FUROSEMIDE
  4. SPIRONOLACTONE [Concomitant]
     Active Substance: SPIRONOLACTONE
  5. METOPROLOL SUCCINATE [Concomitant]
     Active Substance: METOPROLOL SUCCINATE
  6. DRONABINOL [Concomitant]
     Active Substance: DRONABINOL

REACTIONS (4)
  - Pericardial effusion [Unknown]
  - Cardiac disorder [Unknown]
  - Weight decreased [Unknown]
  - Decreased appetite [Unknown]
